FAERS Safety Report 9602582 (Version 1)
Quarter: 2013Q4

REPORT INFORMATION
  Report Type: Spontaneous
  Country: US (occurrence: US)
  Receive Date: 20131007
  Receipt Date: 20131007
  Transmission Date: 20140711
  Serious: No
  Sender: FDA-Public Use
  Company Number: US-PFIZER INC-2013282636

PATIENT
  Age: 78 Year
  Sex: Female
  Weight: 50.79 kg

DRUGS (2)
  1. ADVIL PM [Suspect]
     Indication: INSOMNIA
     Dosage: UNK, ONCE A DAY
     Route: 048
     Dates: start: 201307
  2. ADVIL PM [Suspect]
     Indication: PAIN
     Dosage: UNK, ONCE A DAY
     Route: 048
     Dates: start: 2013

REACTIONS (1)
  - Drug ineffective [Unknown]
